FAERS Safety Report 6580118-8 (Version None)
Quarter: 2010Q1

REPORT INFORMATION
  Report Type: 
  Country: None (occurrence: None)
  Receive Date: 20100212
  Receipt Date: 20100203
  Transmission Date: 20100710
  Serious: Yes (Other)
  Sender: FDA-Public Use
  Company Number: US-PFIZER INC-2009309928

PATIENT
  Age: 79 Year
  Sex: Female
  Weight: 45.351 kg

DRUGS (10)
  1. LIPITOR [Suspect]
     Indication: BLOOD CHOLESTEROL INCREASED
     Dosage: 40 MG, 1X/DAY
  2. LIPITOR [Suspect]
     Dosage: 20 MG, 1X/DAY
     Dates: start: 20080601, end: 20090101
  3. LIPITOR [Suspect]
     Dosage: 80 MG, UNK
     Route: 048
  4. CRESTOR [Suspect]
     Indication: BLOOD CHOLESTEROL INCREASED
     Dosage: 20 MG, UNK
     Dates: start: 20090101
  5. ATENOLOL [Concomitant]
     Dosage: UNK
  6. HYDROCHLOROTHIAZIDE [Concomitant]
     Dosage: UNK
  7. ACETYLSALICYLIC ACID [Concomitant]
     Dosage: 81 MG, UNK
  8. FOSAMAX [Concomitant]
     Dosage: UNK
  9. FISH OIL [Concomitant]
     Dosage: UNK
  10. MULTI-VITAMINS [Concomitant]
     Dosage: UNK

REACTIONS (3)
  - ALOPECIA [None]
  - BLOOD CHOLESTEROL INCREASED [None]
  - MYOCARDIAL INFARCTION [None]
